FAERS Safety Report 24431639 (Version 1)
Quarter: 2024Q4

REPORT INFORMATION
  Report Type: Report from Study
  Country: GB (occurrence: GB)
  Receive Date: 20241014
  Receipt Date: 20241014
  Transmission Date: 20250115
  Serious: Yes (Hospitalization)
  Sender: ABBVIE
  Company Number: GB-ABBVIE-5961178

PATIENT
  Age: 23 Year
  Sex: Male

DRUGS (1)
  1. RINVOQ [Suspect]
     Active Substance: UPADACITINIB
     Indication: Ankylosing spondylitis
     Dosage: FORM STRENGTH UNITS: 15 MILLIGRAM
     Route: 048
     Dates: end: 2024

REACTIONS (1)
  - Meningitis [Not Recovered/Not Resolved]

NARRATIVE: CASE EVENT DATE: 20240101
